APPROVED DRUG PRODUCT: TROSPIUM CHLORIDE
Active Ingredient: TROSPIUM CHLORIDE
Strength: 20MG
Dosage Form/Route: TABLET;ORAL
Application: A091573 | Product #001 | TE Code: AB
Applicant: PADAGIS US LLC
Approved: Nov 17, 2010 | RLD: No | RS: No | Type: RX